FAERS Safety Report 24087719 (Version 1)
Quarter: 2024Q3

REPORT INFORMATION
  Report Type: Spontaneous
  Country: AT (occurrence: AT)
  Receive Date: 20240715
  Receipt Date: 20240715
  Transmission Date: 20241017
  Serious: No
  Sender: ALKEM
  Company Number: AT-ALKEM LABORATORIES LIMITED-AT-ALKEM-2024-09374

PATIENT
  Age: 23 Year
  Sex: Male

DRUGS (2)
  1. OXCARBAZEPINE [Suspect]
     Active Substance: OXCARBAZEPINE
     Indication: Generalised tonic-clonic seizure
     Dosage: 600 MILLIGRAM, QD
     Route: 065
  2. OXCARBAZEPINE [Suspect]
     Active Substance: OXCARBAZEPINE
     Dosage: 900 MILLIGRAM, QD
     Route: 065

REACTIONS (2)
  - Panic attack [Recovered/Resolved]
  - Anticipatory anxiety [Unknown]
